FAERS Safety Report 8511534-2 (Version None)
Quarter: 2012Q3

REPORT INFORMATION
  Report Type: 
  Country: None (occurrence: None)
  Receive Date: 20120710
  Receipt Date: 20120710
  Transmission Date: 20120928
  Serious: No
  Sender: FDA-Public Use
  Company Number: None

PATIENT
  Age: 61 Year
  Sex: Female
  Weight: 73.9363 kg

DRUGS (8)
  1. MULTIVIT-ALL OF LONG DURATION OF USE- [Concomitant]
  2. SMZ/TMP DS 800-160 800-160 INTERPHARM [Suspect]
     Indication: FOLLICULITIS
     Dates: start: 20120630, end: 20120706
  3. GENERIC LORATIDINE 10MG NIGHTLY [Concomitant]
  4. CALCIUM [Concomitant]
  5. GENERIC ESTRACE 1MG DAILY [Concomitant]
  6. FISH OIL [Concomitant]
  7. ASPIRIN [Concomitant]
  8. VIT E [Concomitant]

REACTIONS (1)
  - RASH [None]
